FAERS Safety Report 8553116-2 (Version None)
Quarter: 2012Q3

REPORT INFORMATION
  Report Type: 
  Country: None (occurrence: None)
  Receive Date: 20120731
  Receipt Date: 20120724
  Transmission Date: 20120928
  Serious: Yes (Other)
  Sender: FDA-Public Use
  Company Number: CA-JNJFOC-20120706605

PATIENT

DRUGS (7)
  1. DOXORUBICIN HYDROCHLORIDE [Suspect]
     Indication: B-CELL LYMPHOMA
     Dosage: 6 CYCLES
     Route: 042
  2. DOXORUBICIN HYDROCHLORIDE [Suspect]
     Dosage: 6 CYCLES
     Route: 065
  3. PREDNISONE [Suspect]
     Indication: B-CELL LYMPHOMA
     Dosage: 6 CYCLES
     Route: 065
  4. YTTRIUM 90 IBRITUMOMAB TIUXETAN [Suspect]
     Indication: B-CELL LYMPHOMA
     Route: 065
  5. CYCLOPHOSPHAMIDE [Suspect]
     Indication: B-CELL LYMPHOMA
     Dosage: 6 CYCLES
     Route: 065
  6. VINCRISTINE [Suspect]
     Indication: B-CELL LYMPHOMA
     Dosage: 6 CYCLES
     Route: 065
  7. RITUXIMAB [Suspect]
     Indication: B-CELL LYMPHOMA
     Dosage: 6 CYCLES
     Route: 065

REACTIONS (1)
  - TREATMENT RELATED SECONDARY MALIGNANCY [None]
